FAERS Safety Report 22131404 (Version 1)
Quarter: 2023Q1

REPORT INFORMATION
  Report Type: Spontaneous
  Country: BR (occurrence: BR)
  Receive Date: 20230323
  Receipt Date: 20230323
  Transmission Date: 20230417
  Serious: Yes (Other)
  Sender: FDA-Public Use
  Company Number: BR-ORGANON-O2303BRA001651

PATIENT
  Sex: Female
  Weight: 61 kg

DRUGS (1)
  1. ETONOGESTREL [Suspect]
     Active Substance: ETONOGESTREL
     Indication: Contraception
     Dosage: 1 DOSAGE FORM
     Route: 059
     Dates: start: 20220425, end: 20230208

REACTIONS (15)
  - Surgery [Unknown]
  - General anaesthesia [Unknown]
  - Heavy menstrual bleeding [Recovered/Resolved]
  - Alopecia [Recovered/Resolved]
  - Swelling [Recovered/Resolved]
  - Breast pain [Recovered/Resolved]
  - Mood swings [Recovered/Resolved]
  - Weight increased [Recovered/Resolved]
  - Pain in extremity [Recovered/Resolved]
  - Complication associated with device [Recovered/Resolved]
  - Device issue [Recovered/Resolved]
  - Device deployment issue [Recovered/Resolved]
  - Device placement issue [Recovered/Resolved]
  - Complication of device removal [Recovered/Resolved]
  - Prescription drug used without a prescription [Unknown]

NARRATIVE: CASE EVENT DATE: 20220425
